FAERS Safety Report 4588631-X (Version None)
Quarter: 2005Q1

REPORT INFORMATION
  Report Type: 
  Country: None (occurrence: None)
  Receive Date: 20050218
  Receipt Date: 20050215
  Transmission Date: 20050727
  Serious: Yes (Hospitalization, Other)
  Sender: FDA-Public Use
  Company Number: 05-01-0094

PATIENT
  Age: 62 Year
  Sex: Female
  Weight: 51.7101 kg

DRUGS (5)
  1. CLOZAPINE [Suspect]
     Indication: SCHIZOPHRENIA
     Dosage: 300MG QD ORAL
     Route: 048
     Dates: start: 20010101, end: 20050101
  2. CLOZAPINE [Suspect]
     Indication: SCHIZOPHRENIA, PARANOID TYPE
     Dosage: 300MG QD ORAL
     Route: 048
     Dates: start: 20010101, end: 20050101
  3. LIPITOR [Concomitant]
  4. ZANTAC [Concomitant]
  5. SYNTHROID [Concomitant]

REACTIONS (5)
  - DRUG TOXICITY [None]
  - EATING DISORDER [None]
  - NEUTROPHIL COUNT INCREASED [None]
  - PNEUMONIA [None]
  - WEIGHT DECREASED [None]
